FAERS Safety Report 16819017 (Version 4)
Quarter: 2020Q2

REPORT INFORMATION
  Report Type: Spontaneous
  Country: JP (occurrence: JP)
  Receive Date: 20190917
  Receipt Date: 20200622
  Transmission Date: 20200713
  Serious: Yes (Other)
  Sender: FDA-Public Use
  Company Number: JP-JNJFOC-20190911409

PATIENT
  Age: 70 Year
  Sex: Female
  Weight: 41 kg

DRUGS (2)
  1. TREMFYA [Suspect]
     Active Substance: GUSELKUMAB
     Indication: PSORIASIS
     Route: 058
  2. TREMFYA [Suspect]
     Active Substance: GUSELKUMAB

REACTIONS (1)
  - Dementia Alzheimer^s type [Unknown]
